FAERS Safety Report 20961879 (Version 1)
Quarter: 2022Q2

REPORT INFORMATION
  Report Type: Spontaneous
  Country: US (occurrence: None)
  Receive Date: 20220615
  Receipt Date: 20220615
  Transmission Date: 20220720
  Serious: No
  Sender: FDA-Public Use
  Company Number: 2022A214392

PATIENT
  Sex: Female

DRUGS (1)
  1. CALQUENCE [Suspect]
     Active Substance: ACALABRUTINIB
     Route: 048

REACTIONS (5)
  - White blood cell count increased [Unknown]
  - Lymphocyte count increased [Unknown]
  - Arthralgia [Unknown]
  - Myalgia [Unknown]
  - Drug ineffective [Unknown]
